FAERS Safety Report 17745417 (Version 2)
Quarter: 2020Q2

REPORT INFORMATION
  Report Type: Spontaneous
  Country: SE (occurrence: SE)
  Receive Date: 20200504
  Receipt Date: 20200507
  Transmission Date: 20200714
  Serious: Yes (Other)
  Sender: FDA-Public Use
  Company Number: SE-AUROBINDO-AUR-APL-2020-021340

PATIENT
  Age: 29 Year
  Sex: Female
  Weight: 65 kg

DRUGS (1)
  1. SERTRALINE [Suspect]
     Active Substance: SERTRALINE HYDROCHLORIDE
     Indication: GENERALISED ANXIETY DISORDER
     Dosage: 200 MILLIGRAM, DAILY
     Route: 065
     Dates: start: 20190501

REACTIONS (5)
  - Food craving [Recovering/Resolving]
  - Hair growth abnormal [Recovering/Resolving]
  - Trichorrhexis [Recovering/Resolving]
  - Weight increased [Recovering/Resolving]
  - Anorgasmia [Recovering/Resolving]

NARRATIVE: CASE EVENT DATE: 2019
